FAERS Safety Report 9224371 (Version 1)
Quarter: 2013Q2

REPORT INFORMATION
  Report Type: Spontaneous
  Country: CL (occurrence: CL)
  Receive Date: 20130411
  Receipt Date: 20130411
  Transmission Date: 20140414
  Serious: Yes (Death, Life-Threatening, Other)
  Sender: FDA-Public Use
  Company Number: PHHY2013CL034543

PATIENT
  Age: 87 Year
  Sex: Male

DRUGS (2)
  1. TAREG D [Suspect]
     Indication: HYPERTENSION
     Dosage: 1 DF (160 MG VALS AND 25 MG HCTZ), QD
     Route: 048
     Dates: start: 1990
  2. ASPIRIN [Concomitant]
     Dosage: 100 MG, QD

REACTIONS (2)
  - Cerebrovascular accident [Fatal]
  - Cardio-respiratory arrest [Fatal]
